FAERS Safety Report 8489624-2 (Version None)
Quarter: 2012Q2

REPORT INFORMATION
  Report Type: 
  Country: None (occurrence: None)
  Receive Date: 20120626
  Receipt Date: 20120622
  Transmission Date: 20120825
  Serious: Yes (Death)
  Sender: FDA-Public Use
  Company Number: 2012SP034919

PATIENT
  Age: 49 Year
  Sex: Male

DRUGS (7)
  1. REMERON [Suspect]
     Indication: DEPRESSION
     Dosage: 15 MG;  5 MG; 7.5 MG; 15 MG ; PO
     Route: 048
     Dates: start: 20111122, end: 20111128
  2. REMERON [Suspect]
     Indication: DEPRESSION
     Dosage: 15 MG;  5 MG; 7.5 MG; 15 MG ; PO
     Route: 048
     Dates: start: 20111114, end: 20111121
  3. REMERON [Suspect]
     Indication: DEPRESSION
     Dosage: 15 MG;  5 MG; 7.5 MG; 15 MG ; PO
     Route: 048
     Dates: start: 20111214, end: 20111217
  4. REMERON [Suspect]
     Indication: DEPRESSION
     Dosage: 15 MG;  5 MG; 7.5 MG; 15 MG ; PO
     Route: 048
     Dates: start: 20111129, end: 20111213
  5. ABILIFY [Concomitant]
  6. LUVOX [Concomitant]
  7. SEDIEL [Concomitant]

REACTIONS (1)
  - COMPLETED SUICIDE [None]
